FAERS Safety Report 7122992-2 (Version None)
Quarter: 2010Q4

REPORT INFORMATION
  Report Type: 
  Country: None (occurrence: None)
  Receive Date: 20101124
  Receipt Date: 20101112
  Transmission Date: 20110411
  Serious: Yes (Death, Hospitalization, Other)
  Sender: FDA-Public Use
  Company Number: JP-CELGENEUS-087-21880-10111059

PATIENT
  Sex: Male

DRUGS (5)
  1. REVLIMID [Suspect]
     Indication: MULTIPLE MYELOMA
     Route: 048
     Dates: start: 20100922, end: 20100928
  2. REVLIMID [Suspect]
     Route: 048
     Dates: start: 20101005, end: 20101019
  3. REVLIMID [Suspect]
     Route: 048
     Dates: start: 20101028, end: 20101104
  4. LENADEX [Suspect]
     Indication: MULTIPLE MYELOMA
     Route: 048
     Dates: start: 20100922, end: 20101011
  5. LENADEX [Suspect]
     Route: 048
     Dates: start: 20101028, end: 20101031

REACTIONS (6)
  - CARDIAC ARREST [None]
  - INTERSTITIAL LUNG DISEASE [None]
  - NEUTROPENIA [None]
  - PULMONARY MYCOSIS [None]
  - TACHYCARDIA [None]
  - THROMBOCYTOPENIA [None]
